FAERS Safety Report 8575903-7 (Version None)
Quarter: 2012Q3

REPORT INFORMATION
  Report Type: 
  Country: None (occurrence: None)
  Receive Date: 20120807
  Receipt Date: 20120803
  Transmission Date: 20120928
  Serious: Yes (Other)
  Sender: FDA-Public Use
  Company Number: US-TEVA-352195USA

PATIENT
  Age: 5 Year
  Sex: Male

DRUGS (5)
  1. SPRYCEL [Suspect]
     Indication: B PRECURSOR TYPE ACUTE LEUKAEMIA
     Dosage: 1120 MILLIGRAM TOTAL
     Route: 048
     Dates: start: 20100611
  2. PREDNISONE [Suspect]
     Indication: B PRECURSOR TYPE ACUTE LEUKAEMIA
     Dosage: 270 MILLIGRAM TOTAL
     Route: 048
     Dates: start: 20100611
  3. VINCRISTINE [Suspect]
     Indication: B PRECURSOR TYPE ACUTE LEUKAEMIA
     Dosage: 2 MILLIGRAM TOTAL
     Route: 042
     Dates: start: 20100611
  4. MERCAPTOPURINE [Suspect]
     Indication: B PRECURSOR TYPE ACUTE LEUKAEMIA
     Dosage: 2800 MILLIGRAM TOTAL
     Route: 048
     Dates: start: 20100611
  5. METHOTREXATE [Suspect]
     Indication: B PRECURSOR TYPE ACUTE LEUKAEMIA
     Dosage: 110 MILLIGRAM TOTAL
     Route: 048
     Dates: start: 20100611

REACTIONS (2)
  - ASPARTATE AMINOTRANSFERASE INCREASED [None]
  - ALANINE AMINOTRANSFERASE INCREASED [None]
